FAERS Safety Report 6067818-3 (Version None)
Quarter: 2009Q1

REPORT INFORMATION
  Report Type: 
  Country: None (occurrence: None)
  Receive Date: 20090203
  Receipt Date: 20090123
  Transmission Date: 20090719
  Serious: Yes (Hospitalization)
  Sender: FDA-Public Use
  Company Number: 2009-00064

PATIENT
  Age: 75 Year
  Sex: Male
  Weight: 102 kg

DRUGS (4)
  1. VELCADE [Suspect]
     Indication: MULTIPLE MYELOMA
     Dosage: 298 MG, INTRAVENOUS
     Route: 042
     Dates: start: 20080922, end: 20081113
  2. DEXAMETHASONE TAB [Suspect]
     Indication: MULTIPLE MYELOMA
     Dosage: 20 MG, ORAL
     Route: 048
     Dates: start: 20080922, end: 20081114
  3. COUMADIN [Concomitant]
  4. SPIRONOLACTONE [Concomitant]

REACTIONS (16)
  - BLOOD CALCIUM DECREASED [None]
  - BLOOD CHLORIDE INCREASED [None]
  - COAGULOPATHY [None]
  - DEHYDRATION [None]
  - DYSSTASIA [None]
  - GAIT DISTURBANCE [None]
  - HAEMOGLOBIN DECREASED [None]
  - INTERNATIONAL NORMALISED RATIO INCREASED [None]
  - MUSCULAR WEAKNESS [None]
  - MYOPATHY [None]
  - NEUROPATHY PERIPHERAL [None]
  - ORTHOSTATIC HYPOTENSION [None]
  - PROTHROMBIN TIME PROLONGED [None]
  - SPINAL OSTEOARTHRITIS [None]
  - UROSEPSIS [None]
  - WHITE BLOOD CELL COUNT DECREASED [None]
